FAERS Safety Report 8224048-4 (Version None)
Quarter: 2012Q1

REPORT INFORMATION
  Report Type: 
  Country: None (occurrence: None)
  Receive Date: 20120321
  Receipt Date: 20120221
  Transmission Date: 20120608
  Serious: No
  Sender: FDA-Public Use
  Company Number: US-MYLANLABS-2012S1003963

PATIENT
  Sex: Female

DRUGS (2)
  1. THYROID SUPPLEMENT [Concomitant]
     Indication: HYPOTHYROIDISM
  2. ANASTROZOLE [Suspect]
     Indication: BREAST CANCER
     Route: 048
     Dates: start: 20100101, end: 20120201

REACTIONS (3)
  - ARTHRALGIA [None]
  - ABDOMINAL DISTENSION [None]
  - HOT FLUSH [None]
